FAERS Safety Report 23105842 (Version 1)
Quarter: 2023Q4

REPORT INFORMATION
  Report Type: Spontaneous
  Country: US (occurrence: None)
  Receive Date: 20231024
  Receipt Date: 20231024
  Transmission Date: 20240110
  Serious: Yes (Hospitalization)
  Sender: FDA-Public Use
  Company Number: None

PATIENT
  Age: 52 Year
  Sex: Female
  Weight: 171 kg

DRUGS (2)
  1. NIRMATRELVIR\RITONAVIR [Suspect]
     Active Substance: NIRMATRELVIR\RITONAVIR
     Dosage: FREQUENCY : TWICE A DAY;?
     Route: 048
     Dates: start: 20230126, end: 20230201
  2. BUSPIRONE HCL [Suspect]
     Active Substance: BUSPIRONE HYDROCHLORIDE

REACTIONS (11)
  - Agitation [None]
  - Anxiety [None]
  - Hyperventilation [None]
  - Tremor [None]
  - Dyspnoea [None]
  - Insomnia [None]
  - Tearfulness [None]
  - Hallucination, visual [None]
  - Drug interaction [None]
  - Product communication issue [None]
  - Panic attack [None]

NARRATIVE: CASE EVENT DATE: 20230202
